FAERS Safety Report 8859398 (Version 3)
Quarter: 2012Q4

REPORT INFORMATION
  Report Type: 
  Country: US (occurrence: US)
  Receive Date: 20121024
  Receipt Date: 20121205
  Transmission Date: 20130627
  Serious: Yes (Hospitalization, Other)
  Sender: FDA-Public Use
  Company Number: US-BAYER-2012-110691

PATIENT
  Age: 78 Year
  Sex: Female
  Weight: 63 kg

DRUGS (30)
  1. TRASYLOL [Suspect]
     Indication: CORONARY ARTERY BYPASS GRAFT
     Dosage: Test dose: 1mL; 1 million units with bypass
     Dates: start: 20010817, end: 20010817
  2. TRASYLOL [Suspect]
     Indication: CORONARY ARTERY BYPASS GRAFT
     Dosage: Loading dose: 200mL load followed by 25mL/hour continous infusion
     Dates: start: 20010817, end: 20010817
  3. ISOSORBIDE MONONITRATE [Concomitant]
     Dosage: BID
  4. TENORMIN [Concomitant]
     Dosage: UNK
  5. VASOTEC [Concomitant]
  6. COZAAR [Concomitant]
     Dosage: 50 mg, QD
  7. LASIX [Concomitant]
     Dosage: 40 mg, BID
  8. LASIX [Concomitant]
     Dosage: UNK
     Dates: start: 20010817, end: 20010817
  9. FORANE [Concomitant]
     Dosage: UNK
     Dates: start: 20010817, end: 20010817
  10. VERSED [Concomitant]
     Dosage: UNK
     Dates: start: 20010817, end: 20010817
  11. FENTANYL [Concomitant]
     Dosage: UNK
     Dates: start: 20010817, end: 20010817
  12. ZEMURON [Concomitant]
     Dosage: UNK
     Dates: start: 20010817, end: 20010817
  13. PAVULON [Concomitant]
     Dosage: UNK
     Dates: start: 20010817, end: 20010817
  14. MORPHINE [Concomitant]
     Dosage: UNK
     Dates: start: 20010817, end: 20010817
  15. CALCIUM CHLORIDE [Concomitant]
     Dosage: UNK
     Dates: start: 20010817, end: 20010817
  16. MAGNESIUM SULFATE [Concomitant]
     Dosage: UNK
     Dates: start: 20010817, end: 20010817
  17. LEVOPHED [Concomitant]
     Dosage: UNK
     Dates: start: 20010817
  18. NEOSYNEPHRINE [Concomitant]
     Dosage: UNK
     Dates: start: 20010817, end: 20010817
  19. PRIMACOR [Concomitant]
     Dosage: UNK
     Dates: start: 20010817, end: 20010817
  20. LIDOCAINE [Concomitant]
     Dosage: UNK
     Dates: start: 20010817, end: 20010817
  21. HEPARIN [Concomitant]
     Dosage: UNK
     Dates: start: 20010817, end: 20010817
  22. SODIUM BICARBONATE [Concomitant]
     Dosage: UNK
     Dates: start: 20010817, end: 20010817
  23. MANNITOL [Concomitant]
     Dosage: UNK
     Dates: start: 20010817, end: 20010817
  24. PLASMA [Concomitant]
     Dosage: UNK
     Dates: start: 20010817
  25. BLOOD AND RELATED PRODUCTS [Concomitant]
     Dosage: UNK
     Dates: start: 20010817
  26. PACKED RED BLOOD CELLS [Concomitant]
     Dosage: UNK
  27. SOLUMEDROL [Concomitant]
     Dosage: UNK
     Dates: start: 20010817, end: 20010817
  28. ANCEF [Concomitant]
     Dosage: UNK
     Dates: start: 20010817, end: 20010817
  29. GENTAMYCIN [Concomitant]
     Dosage: UNK
     Dates: start: 20010817, end: 20010817
  30. PROTAMINE [Concomitant]
     Dosage: UNK

REACTIONS (1)
  - Renal failure acute [None]
